FAERS Safety Report 10502850 (Version 2)
Quarter: 2014Q4

REPORT INFORMATION
  Report Type: Report from Study
  Country: JP (occurrence: JP)
  Receive Date: 20141007
  Receipt Date: 20141007
  Transmission Date: 20150528
  Serious: Yes (Death)
  Sender: FDA-Public Use
  Company Number: JP-CUBIST PHARMACEUTICALS, INC.-2014CBST000437

PATIENT

DRUGS (17)
  1. HYDROCORTONE                       /00028601/ [Concomitant]
     Indication: PRODUCT USED FOR UNKNOWN INDICATION
     Dosage: 100 MG, TID
     Route: 051
     Dates: start: 20131220, end: 20131222
  2. GLOVENIN [Concomitant]
     Indication: PRODUCT USED FOR UNKNOWN INDICATION
     Dosage: 5 G, ONCE DAILY
     Route: 051
     Dates: start: 20131219, end: 20131222
  3. TEICOPLANIN [Concomitant]
     Active Substance: TEICOPLANIN
     Indication: ENTEROCOCCAL INFECTION
  4. DALACIN-S [Concomitant]
     Active Substance: CLINDAMYCIN\CLINDAMYCIN PHOSPHATE
     Indication: SKIN INFECTION
  5. AMIKACIN SULFATE. [Concomitant]
     Active Substance: AMIKACIN SULFATE
     Indication: SKIN INFECTION
  6. CUBICIN [Suspect]
     Active Substance: DAPTOMYCIN
     Indication: ENTEROCOCCAL INFECTION
     Dosage: 6 MG/KG, EVERY OTHER DAY
     Route: 042
     Dates: start: 20131219, end: 20131222
  7. CUBICIN [Suspect]
     Active Substance: DAPTOMYCIN
     Indication: OFF LABEL USE
  8. AMIKACIN SULFATE. [Concomitant]
     Active Substance: AMIKACIN SULFATE
     Indication: ENTEROCOCCAL INFECTION
  9. NEUART [Concomitant]
     Indication: DISSEMINATED INTRAVASCULAR COAGULATION
     Dosage: 1.5 THOUSAND-MILLION UNIT, ONCE DAILY
     Route: 051
     Dates: start: 20131219, end: 20131221
  10. AMBISOME [Concomitant]
     Active Substance: AMPHOTERICIN B
     Indication: PROPHYLAXIS
     Dosage: 150 MG, ONCE DAILY
     Route: 051
     Dates: start: 20131209, end: 20131222
  11. CUBICIN [Suspect]
     Active Substance: DAPTOMYCIN
     Indication: SOFT TISSUE INFECTION
  12. TEICOPLANIN [Concomitant]
     Active Substance: TEICOPLANIN
     Indication: SKIN INFECTION
  13. DALACIN-S [Concomitant]
     Active Substance: CLINDAMYCIN\CLINDAMYCIN PHOSPHATE
     Indication: SOFT TISSUE INFECTION
  14. AMIKACIN SULFATE. [Concomitant]
     Active Substance: AMIKACIN SULFATE
     Indication: SOFT TISSUE INFECTION
     Dosage: 350 MG, ONCE DAILY
     Route: 041
     Dates: start: 20131213, end: 20131219
  15. CUBICIN [Suspect]
     Active Substance: DAPTOMYCIN
     Indication: SKIN INFECTION
  16. TEICOPLANIN [Concomitant]
     Active Substance: TEICOPLANIN
     Indication: SOFT TISSUE INFECTION
     Dosage: 400 MG, ONCE DAILY
     Route: 041
     Dates: start: 20131213, end: 20131219
  17. DALACIN-S [Concomitant]
     Active Substance: CLINDAMYCIN\CLINDAMYCIN PHOSPHATE
     Indication: ENTEROCOCCAL INFECTION
     Dosage: 600 MG, BID
     Route: 051
     Dates: start: 20131125, end: 20131221

REACTIONS (2)
  - Overdose [Unknown]
  - Multi-organ failure [Fatal]

NARRATIVE: CASE EVENT DATE: 20131222
